FAERS Safety Report 6882695-6 (Version None)
Quarter: 2010Q3

REPORT INFORMATION
  Report Type: 
  Country: None (occurrence: None)
  Receive Date: 20100729
  Receipt Date: 20100716
  Transmission Date: 20110219
  Serious: Yes (Hospitalization, Other)
  Sender: FDA-Public Use
  Company Number: US-ELI_LILLY_AND_COMPANY-US201003003653

PATIENT
  Sex: Female

DRUGS (8)
  1. FORTEO [Suspect]
     Indication: OSTEOPOROSIS
     Dosage: 20 UG, DAILY (1/D)
     Dates: start: 20090225
  2. FORTEO [Suspect]
     Dosage: 20 UG, DAILY (1/D)
     Dates: start: 20090201
  3. FORTEO [Suspect]
     Dosage: 20 UG, DAILY (1/D)
     Route: 065
  4. METHOTREXATE [Concomitant]
     Dosage: UNK, UNKNOWN
  5. SALSALATE [Concomitant]
     Dosage: UNK, UNKNOWN
  6. ASPIRIN [Concomitant]
     Dosage: UNK, UNKNOWN
  7. CITRUCEL [Concomitant]
     Dosage: 4 D/F, DAILY (1/D)
  8. VITAMIN D [Concomitant]
     Dosage: UNK, UNKNOWN

REACTIONS (11)
  - ARTHRALGIA [None]
  - BACK PAIN [None]
  - BALANCE DISORDER [None]
  - CARDIOVASCULAR DISORDER [None]
  - FALL [None]
  - FEMUR FRACTURE [None]
  - GAIT DISTURBANCE [None]
  - JOINT RANGE OF MOTION DECREASED [None]
  - OEDEMA PERIPHERAL [None]
  - PAIN IN EXTREMITY [None]
  - VITAMIN D DECREASED [None]
